FAERS Safety Report 6612452-7 (Version None)
Quarter: 2010Q1

REPORT INFORMATION
  Report Type: 
  Country: None (occurrence: None)
  Receive Date: 20100303
  Receipt Date: 20100226
  Transmission Date: 20100710
  Serious: Yes (Death, Hospitalization)
  Sender: FDA-Public Use
  Company Number: PHHY2010BE03669

PATIENT
  Age: 83 Year
  Sex: Female

DRUGS (3)
  1. GLEEVEC [Suspect]
     Indication: CHRONIC MYELOID LEUKAEMIA
     Route: 048
  2. GLEEVEC [Suspect]
     Dosage: 100 MG/DAY
     Route: 048
  3. CORTICOSTEROIDS [Suspect]

REACTIONS (5)
  - BRONCHIECTASIS [None]
  - BRONCHOPULMONARY ASPERGILLOSIS [None]
  - DRUG HYPERSENSITIVITY [None]
  - PNEUMOCYSTIS JIROVECI PNEUMONIA [None]
  - PNEUMONIA CYTOMEGALOVIRAL [None]
